FAERS Safety Report 6545059-0 (Version None)
Quarter: 2010Q1

REPORT INFORMATION
  Report Type: 
  Country: None (occurrence: None)
  Receive Date: 20100121
  Receipt Date: 20100120
  Transmission Date: 20100710
  Serious: Yes (Death)
  Sender: FDA-Public Use
  Company Number: B0628157A

PATIENT

DRUGS (1)
  1. LANOXIN [Suspect]
     Dosage: 8.8ML THREE TIMES PER DAY
     Route: 065
     Dates: start: 20050101, end: 20050101

REACTIONS (1)
  - OVERDOSE [None]
